FAERS Safety Report 7067773-3 (Version None)
Quarter: 2010Q4

REPORT INFORMATION
  Report Type: 
  Country: None (occurrence: None)
  Receive Date: 20101028
  Receipt Date: 20100416
  Transmission Date: 20110411
  Serious: No
  Sender: FDA-Public Use
  Company Number: A0844960A

PATIENT
  Sex: Female

DRUGS (3)
  1. SEREVENT [Suspect]
     Indication: CHRONIC OBSTRUCTIVE PULMONARY DISEASE
     Dosage: 1PUFF TWICE PER DAY
     Route: 055
     Dates: start: 20020201
  2. SUDAFED 12 HOUR [Concomitant]
  3. KLARON [Concomitant]

REACTIONS (2)
  - DRUG INEFFECTIVE [None]
  - PRODUCT QUALITY ISSUE [None]
